FAERS Safety Report 10103101 (Version 2)
Quarter: 2014Q3

REPORT INFORMATION
  Report Type: Spontaneous
  Country: US (occurrence: US)
  Receive Date: 20140424
  Receipt Date: 20140910
  Transmission Date: 20150326
  Serious: Yes (Hospitalization)
  Sender: FDA-Public Use
  Company Number: US-GLAXOSMITHKLINE-A1069784A

PATIENT
  Age: 84 Year
  Sex: Male

DRUGS (5)
  1. AMLODIPINE [Concomitant]
     Active Substance: AMLODIPINE BESYLATE
  2. POTASSIUM [Concomitant]
     Active Substance: POTASSIUM
  3. ARIXTRA [Suspect]
     Active Substance: FONDAPARINUX SODIUM
     Indication: THROMBOSIS
     Dosage: 7.5MG PER DAY
     Route: 058
     Dates: start: 201306
  4. GLIPIZIDE. [Concomitant]
     Active Substance: GLIPIZIDE
  5. METFORMIN [Concomitant]
     Active Substance: METFORMIN HYDROCHLORIDE

REACTIONS (5)
  - Cardiac valve vegetation [Recovered/Resolved]
  - Body temperature increased [Recovered/Resolved]
  - Device related infection [Recovered/Resolved]
  - Sepsis [Recovered/Resolved]
  - Blood pressure increased [Recovered/Resolved]

NARRATIVE: CASE EVENT DATE: 20140321
